FAERS Safety Report 4725833-3 (Version None)
Quarter: 2005Q3

REPORT INFORMATION
  Report Type: 
  Country: None (occurrence: None)
  Receive Date: 20050722
  Receipt Date: 20050722
  Transmission Date: 20060218
  Serious: Yes (Hospitalization)
  Sender: FDA-Public Use
  Company Number: None

PATIENT
  Age: 56 Year
  Sex: Male

DRUGS (2)
  1. ARTHROTEC [Suspect]
  2. METHADONE [Suspect]

REACTIONS (4)
  - INFLUENZA [None]
  - MALAISE [None]
  - PNEUMONIA [None]
  - PNEUMONITIS [None]
